FAERS Safety Report 25436605 (Version 1)
Quarter: 2025Q2

REPORT INFORMATION
  Report Type: Spontaneous
  Country: US (occurrence: US)
  Receive Date: 20250614
  Receipt Date: 20250614
  Transmission Date: 20250717
  Serious: Yes (Hospitalization)
  Sender: NOVA LABORATORIES LIMITED
  Company Number: US-Nova Laboratories Limited-2178714

PATIENT
  Age: 4 Year
  Sex: Male

DRUGS (1)
  1. PURIXAN [Suspect]
     Active Substance: MERCAPTOPURINE
     Indication: Acute lymphocytic leukaemia

REACTIONS (3)
  - Neutrophil count decreased [Unknown]
  - Vomiting [Unknown]
  - Nausea [Unknown]
